FAERS Safety Report 4891956-1 (Version None)
Quarter: 2006Q1

REPORT INFORMATION
  Report Type: 
  Country: None (occurrence: None)
  Receive Date: 20060123
  Receipt Date: 20060109
  Transmission Date: 20060701
  Serious: Yes (Hospitalization)
  Sender: FDA-Public Use
  Company Number: 2006007418

PATIENT
  Age: 85 Year
  Sex: Female

DRUGS (6)
  1. ATARAX [Suspect]
     Indication: ABNORMAL BEHAVIOUR
     Dosage: 50 MG(50 MG, DAILY), ORAL
     Route: 048
     Dates: end: 20050918
  2. POTASSIUM CHLORIDE [Suspect]
     Indication: ELECTROLYTE IMBALANCE
     Dosage: 6 CAPSULES DAILY, ORAL
     Route: 048
     Dates: end: 20050918
  3. NORSET (MITRAZAPINE) [Suspect]
     Indication: ABNORMAL BEHAVIOUR
     Dosage: (3 IN 1 D), ORAL
     Route: 048
  4. PRAZEPAM [Suspect]
     Indication: ABNORMAL BEHAVIOUR
     Dosage: (3 IN 1 D), ORAL
     Route: 048
  5. ZOPICLONE (ZOPICLONE) [Suspect]
     Indication: SLEEP DISORDER
     Dosage: 7.5 MGM(7.5 MG,  1 IN 1 D), ORAL
     Route: 048
     Dates: end: 20050918
  6. AMPHOCIN (AMPHOTERICIN) [Suspect]
     Indication: FUNGAL INFECTION
     Dosage: 30 ML (10 ML,  3 IN 1 D), ORAL
     Route: 048
     Dates: end: 20050920

REACTIONS (7)
  - BLOOD GLUCOSE INCREASED [None]
  - BLOOD SODIUM INCREASED [None]
  - DEHYDRATION [None]
  - DISTURBANCE IN ATTENTION [None]
  - RENAL FAILURE [None]
  - SOMNOLENCE [None]
  - URINARY TRACT INFECTION [None]
